FAERS Safety Report 9815592 (Version 1)
Quarter: 2014Q1

REPORT INFORMATION
  Report Type: Spontaneous
  Country: PH (occurrence: PH)
  Receive Date: 20140114
  Receipt Date: 20140114
  Transmission Date: 20141002
  Serious: Yes (Death, Other)
  Sender: FDA-Public Use
  Company Number: PH-009507513-1401PHL003852

PATIENT
  Sex: Male

DRUGS (1)
  1. COZAAR [Suspect]
     Dosage: 1 50 MG TABLET, QD
     Route: 048
     Dates: start: 20130408

REACTIONS (3)
  - Hypovolaemic shock [Fatal]
  - Ulcer [Unknown]
  - Diabetes mellitus [Unknown]
